FAERS Safety Report 11421638 (Version 1)
Quarter: 2015Q3

REPORT INFORMATION
  Report Type: Spontaneous
  Country: US (occurrence: US)
  Receive Date: 20150827
  Receipt Date: 20150827
  Transmission Date: 20151125
  Serious: No
  Sender: FDA-Public Use
  Company Number: US-009507513-1508USA011176

PATIENT
  Sex: Male

DRUGS (1)
  1. NASONEX [Suspect]
     Active Substance: MOMETASONE FUROATE
     Dosage: 2 SPRAYS TWICE DAILY; STRENGTH: 50MCG 1 STANDARD DOSE OF 17
     Route: 045

REACTIONS (4)
  - Nasal congestion [Unknown]
  - Headache [Unknown]
  - Drug dose omission [Unknown]
  - Product quality issue [Unknown]
